FAERS Safety Report 5238572-X (Version None)
Quarter: 2007Q1

REPORT INFORMATION
  Report Type: 
  Country: None (occurrence: None)
  Receive Date: 20070214
  Receipt Date: 20070214
  Transmission Date: 20070707
  Serious: Yes (Hospitalization, Other)
  Sender: FDA-Public Use
  Company Number: None

PATIENT
  Age: 66 Year
  Sex: Male
  Weight: 77.1115 kg

DRUGS (2)
  1. LYRICA [Suspect]
     Indication: NEURALGIA
     Dosage: 200 MG TWICE DAY (AM + PM) MOUTH
     Route: 048
     Dates: start: 20060601
  2. LYRICA [Suspect]
     Indication: NEURALGIA
     Dosage: 100 MG ONCE A DAY - NOON MOUTH
     Route: 048
     Dates: start: 20060601

REACTIONS (3)
  - AORTIC BYPASS [None]
  - DRUG WITHDRAWAL SYNDROME [None]
  - HALLUCINATION [None]
